FAERS Safety Report 13621162 (Version 2)
Quarter: 2017Q4

REPORT INFORMATION
  Report Type: Report from Study
  Country: US (occurrence: US)
  Receive Date: 20170607
  Receipt Date: 20171229
  Transmission Date: 20180320
  Serious: Yes (Hospitalization, Other)
  Sender: FDA-Public Use
  Company Number: US-GILEAD-2017-0265275

PATIENT
  Sex: Male

DRUGS (2)
  1. GENVOYA [Suspect]
     Active Substance: COBICISTAT\ELVITEGRAVIR\EMTRICITABINE\TENOFOVIR ALAFENAMIDE FUMARATE
     Indication: HIV INFECTION
     Route: 065
  2. LEDIPASVIR/SOFOSBUVIR [Suspect]
     Active Substance: LEDIPASVIR\SOFOSBUVIR
     Indication: CHRONIC HEPATITIS C
     Dosage: UNK
     Route: 065
     Dates: start: 20160927, end: 20170127

REACTIONS (19)
  - Acute kidney injury [Recovered/Resolved]
  - Dyspnoea [Recovered/Resolved]
  - Alcohol withdrawal syndrome [Recovered/Resolved]
  - Alcohol abuse [Recovered/Resolved]
  - Hepatic enzyme increased [Recovered/Resolved]
  - Alcohol abuse [Recovered/Resolved]
  - Dyspnoea [Recovered/Resolved]
  - Pancreatitis chronic [Unknown]
  - Syncope [Recovered/Resolved]
  - Syncope [Recovered/Resolved]
  - Insulin-requiring type 2 diabetes mellitus [Recovered/Resolved]
  - Alcohol withdrawal syndrome [Recovered/Resolved]
  - Acute kidney injury [Recovered/Resolved]
  - Alcoholism [Unknown]
  - Hepatitis alcoholic [Unknown]
  - Hepatic enzyme increased [Recovered/Resolved]
  - Dehydration [Unknown]
  - Diabetic ketoacidosis [Recovered/Resolved]
  - Alcohol abuse [Recovered/Resolved]

NARRATIVE: CASE EVENT DATE: 20170111
